FAERS Safety Report 19379203 (Version 2)
Quarter: 2021Q2

REPORT INFORMATION
  Report Type: Spontaneous
  Country: US (occurrence: US)
  Receive Date: 20210607
  Receipt Date: 20210623
  Transmission Date: 20210717
  Serious: Yes (Hospitalization)
  Sender: FDA-Public Use
  Company Number: US-DRREDDYS-USA/USA/21/0136259

PATIENT
  Age: 15 Year
  Sex: Female
  Weight: 53.1 kg

DRUGS (4)
  1. PHYSOSTIGMINE [Concomitant]
     Active Substance: PHYSOSTIGMINE
     Indication: TOXICITY TO VARIOUS AGENTS
  2. DIPHENHYDRAMINE HYDROCHLORIDE. [Suspect]
     Active Substance: DIPHENHYDRAMINE HYDROCHLORIDE
     Indication: PRODUCT USED FOR UNKNOWN INDICATION
     Dosage: 1250?2500MG
  3. DIPHENHYDRAMINE HYDROCHLORIDE. [Suspect]
     Active Substance: DIPHENHYDRAMINE HYDROCHLORIDE
     Dosage: 1250?2500 MG
  4. LORAZEPAM. [Suspect]
     Active Substance: LORAZEPAM
     Indication: AGITATION

REACTIONS (11)
  - Agitation [Recovered/Resolved]
  - Electrocardiogram QT prolonged [Unknown]
  - Drug ineffective [Unknown]
  - Mydriasis [Unknown]
  - Toxicity to various agents [Unknown]
  - Somnolence [Unknown]
  - Disorientation [Recovered/Resolved]
  - Hallucination [Unknown]
  - Hypertension [Unknown]
  - Mucosal dryness [Unknown]
  - Tachycardia [Unknown]
